FAERS Safety Report 24074610 (Version 1)
Quarter: 2024Q3

REPORT INFORMATION
  Report Type: Spontaneous
  Country: US (occurrence: US)
  Receive Date: 20240710
  Receipt Date: 20240710
  Transmission Date: 20241016
  Serious: No
  Sender: PIERRE FABRE MEDICAMENT
  Company Number: US-PFM-2024-00519

PATIENT
  Sex: Male
  Weight: 6.32 kg

DRUGS (2)
  1. HEMANGEOL [Suspect]
     Active Substance: PROPRANOLOL HYDROCHLORIDE
     Indication: Haemangioma
     Dosage: 1.9 ML, BID (2/DAY)
     Route: 048
     Dates: start: 20231227
  2. HEMANGEOL [Suspect]
     Active Substance: PROPRANOLOL HYDROCHLORIDE
     Dosage: 2.2 ML
     Route: 065

REACTIONS (3)
  - Haemangioma [Unknown]
  - Condition aggravated [Unknown]
  - Infantile spitting up [Unknown]
